FAERS Safety Report 10908347 (Version 1)
Quarter: 2015Q1

REPORT INFORMATION
  Report Type: Spontaneous
  Country: US (occurrence: US)
  Receive Date: 20150312
  Receipt Date: 20150312
  Transmission Date: 20150721
  Serious: No
  Sender: FDA-Public Use
  Company Number: US-SA-2014SA080797

PATIENT
  Sex: Female

DRUGS (1)
  1. ELITEK [Suspect]
     Active Substance: RASBURICASE
     Indication: PRODUCT USED FOR UNKNOWN INDICATION
     Dosage: INFUSION
     Dates: start: 20140612

REACTIONS (1)
  - Hot flush [Recovering/Resolving]

NARRATIVE: CASE EVENT DATE: 20140612
